FAERS Safety Report 25063865 (Version 1)
Quarter: 2025Q1

REPORT INFORMATION
  Report Type: Spontaneous
  Country: GB (occurrence: GB)
  Receive Date: 20250311
  Receipt Date: 20250311
  Transmission Date: 20250408
  Serious: Yes (Other)
  Sender: PFIZER
  Company Number: None

PATIENT
  Sex: Female

DRUGS (7)
  1. DEPO-PROVERA [Suspect]
     Active Substance: MEDROXYPROGESTERONE ACETATE
     Indication: Contraception
  2. LANSOPRAZOLE [Concomitant]
     Active Substance: LANSOPRAZOLE
  3. NAPROXEN [Concomitant]
     Active Substance: NAPROXEN
  4. ALBUTEROL [Concomitant]
     Active Substance: ALBUTEROL
  5. CLOBETASOL [Concomitant]
     Active Substance: CLOBETASOL
  6. ESTRADIOL\NORETHINDRONE ACETATE [Concomitant]
     Active Substance: ESTRADIOL\NORETHINDRONE ACETATE
  7. DESOGESTREL [Concomitant]
     Active Substance: DESOGESTREL

REACTIONS (1)
  - Meningioma [Not Recovered/Not Resolved]

NARRATIVE: CASE EVENT DATE: 20220801
